FAERS Safety Report 14723554 (Version 2)
Quarter: 2018Q2

REPORT INFORMATION
  Report Type: Report from Study
  Country: US (occurrence: US)
  Receive Date: 20180405
  Receipt Date: 20180529
  Transmission Date: 20180711
  Serious: Yes (Life-Threatening, Hospitalization)
  Sender: FDA-Public Use
  Company Number: US-SEATTLE GENETICS-2015SGN01186

PATIENT
  Age: 28 Year
  Sex: Female
  Weight: 52.3 kg

DRUGS (10)
  1. IFOSFAMIDE. [Suspect]
     Active Substance: IFOSFAMIDE
     Indication: HODGKIN^S DISEASE
     Dosage: UNK UNK, QCYCLE
     Route: 042
     Dates: start: 20150708, end: 20150708
  2. LORAZEPAM. [Concomitant]
     Active Substance: LORAZEPAM
  3. ETOPOSIDE. [Suspect]
     Active Substance: ETOPOSIDE
     Indication: HODGKIN^S DISEASE
     Dosage: 100 MG/M2, QCYCLE
     Route: 042
     Dates: start: 20150707, end: 20150709
  4. LEVOFLOXACIN. [Concomitant]
     Active Substance: LEVOFLOXACIN
  5. PROCHLORPERAZINE. [Concomitant]
     Active Substance: PROCHLORPERAZINE
  6. ACYCLOVIR                          /00587301/ [Concomitant]
     Active Substance: ACYCLOVIR
  7. BRENTUXIMAB VEDOTIN [Suspect]
     Active Substance: BRENTUXIMAB VEDOTIN
     Indication: HODGKIN^S DISEASE
     Dosage: 1.5 MG/KG, QCYCLE
     Route: 042
     Dates: start: 20150707, end: 20150714
  8. CARBOPLATIN. [Suspect]
     Active Substance: CARBOPLATIN
     Indication: HODGKIN^S DISEASE
     Dosage: UNK UNK, QCYCLE
     Route: 042
     Dates: start: 20150708, end: 20150708
  9. MESNA. [Suspect]
     Active Substance: MESNA
     Indication: HODGKIN^S DISEASE
     Dosage: UNK UNK, QCYCLE
     Route: 042
     Dates: start: 20150708, end: 20150708
  10. FLUCONAZOLE. [Concomitant]
     Active Substance: FLUCONAZOLE

REACTIONS (2)
  - Febrile neutropenia [Recovered/Resolved]
  - Clostridial sepsis [Unknown]

NARRATIVE: CASE EVENT DATE: 20150716
